FAERS Safety Report 16340177 (Version 1)
Quarter: 2019Q2

REPORT INFORMATION
  Report Type: Spontaneous
  Country: FR (occurrence: FR)
  Receive Date: 20190522
  Receipt Date: 20190522
  Transmission Date: 20190711
  Serious: Yes (Other)
  Sender: FDA-Public Use
  Company Number: FR-AUROBINDO-AUR-APL-2019-026460

PATIENT

DRUGS (1)
  1. HYDROXYZINE [Suspect]
     Active Substance: HYDROXYZINE HYDROCHLORIDE
     Indication: CHEMICAL SUBMISSION
     Dosage: UNK
     Route: 048
     Dates: start: 20161224, end: 20161224

REACTIONS (2)
  - Chemical submission [Recovered/Resolved]
  - Aggression [Recovered/Resolved with Sequelae]

NARRATIVE: CASE EVENT DATE: 20161224
